FAERS Safety Report 17194878 (Version 1)
Quarter: 2020Q1

REPORT INFORMATION
  Report Type: Spontaneous
  Country: US (occurrence: US)
  Receive Date: 20191223
  Receipt Date: 20191223
  Transmission Date: 20200409
  Serious: Yes (Hospitalization, Other)
  Sender: FDA-Public Use
  Company Number: None

PATIENT
  Age: 63 Year
  Sex: Male

DRUGS (13)
  1. METHOTREXATE. [Concomitant]
     Active Substance: METHOTREXATE
  2. CIPRO [Concomitant]
     Active Substance: CIPROFLOXACIN HYDROCHLORIDE
  3. PREDNISONE. [Concomitant]
     Active Substance: PREDNISONE
  4. ROSUVASTATIN. [Concomitant]
     Active Substance: ROSUVASTATIN
  5. ATORVASTATIN [Concomitant]
     Active Substance: ATORVASTATIN
  6. TAMSULOSIN [Concomitant]
     Active Substance: TAMSULOSIN
  7. METOPROL TAR [Concomitant]
  8. HUMIRA [Suspect]
     Active Substance: ADALIMUMAB
     Indication: PSORIATIC ARTHROPATHY
     Dosage: ?          OTHER FREQUENCY:EVERY OTHER WEEK;?
     Route: 058
     Dates: start: 20190909
  9. MUPIROCIN. [Concomitant]
     Active Substance: MUPIROCIN
  10. TRIAMCINOLON [Concomitant]
  11. FOLIC ACID. [Concomitant]
     Active Substance: FOLIC ACID
  12. MELOXICAM. [Concomitant]
     Active Substance: MELOXICAM
  13. MISOPROSTOL. [Concomitant]
     Active Substance: MISOPROSTOL

REACTIONS (2)
  - Sepsis [None]
  - Cystitis [None]

NARRATIVE: CASE EVENT DATE: 20191206
